FAERS Safety Report 18023338 (Version 7)
Quarter: 2023Q2

REPORT INFORMATION
  Report Type: Report from Study
  Country: CA (occurrence: CA)
  Receive Date: 20200714
  Receipt Date: 20230407
  Transmission Date: 20230722
  Serious: Yes (Hospitalization)
  Sender: FDA-Public Use
  Company Number: NVSC2020CA193690

PATIENT
  Age: 51 Year
  Sex: Female
  Weight: 89.6 kg

DRUGS (15)
  1. COSENTYX [Suspect]
     Active Substance: SECUKINUMAB
     Indication: Ankylosing spondylitis
     Dosage: 300 MG, Q4S
     Route: 058
     Dates: start: 20190416, end: 20200219
  2. GABAPENTIN [Concomitant]
     Active Substance: GABAPENTIN
     Indication: Ankylosing spondylitis
     Dosage: UNK
     Route: 065
     Dates: start: 20190128
  3. METOCLOPRAMIDE [Concomitant]
     Active Substance: METOCLOPRAMIDE
     Indication: Gastrooesophageal reflux disease
     Dosage: UNK
     Route: 005
     Dates: start: 20200709
  4. DULOXETINE [Concomitant]
     Active Substance: DULOXETINE
     Indication: Fibromyalgia
     Dosage: 90 MG, QD
     Route: 048
     Dates: start: 20190316
  5. DULOXETINE [Concomitant]
     Active Substance: DULOXETINE
     Indication: Ankylosing spondylitis
  6. VITAMIN D [Concomitant]
     Active Substance: VITAMIN D NOS
     Indication: General physical condition
     Dosage: 1000 IU, QD
     Route: 048
     Dates: start: 20190209
  7. TYLENOL ARTHRITIS PAIN [Concomitant]
     Active Substance: ACETAMINOPHEN
     Indication: Ankylosing spondylitis
     Dosage: 1300 MG, BID
     Route: 048
     Dates: start: 20190305
  8. TYLENOL ARTHRITIS PAIN [Concomitant]
     Active Substance: ACETAMINOPHEN
     Indication: Oligoarthritis
  9. SYSTANE (HYPROMELLOSE 2910 (4000 MPA.S)) [Concomitant]
     Active Substance: HYPROMELLOSE 2910 (4000 MPA.S)
     Indication: Dry eye
     Dosage: UNK
     Route: 065
     Dates: start: 2016
  10. PANTOPRAZOLE [Concomitant]
     Active Substance: PANTOPRAZOLE
     Indication: Gastrooesophageal reflux disease
     Dosage: UNK
     Route: 065
     Dates: start: 20191109
  11. PREDNISONE [Concomitant]
     Active Substance: PREDNISONE
     Indication: Ankylosing spondylitis
     Dosage: 15 MG, QD
     Route: 048
     Dates: start: 20200422, end: 20200708
  12. ACETAMINOPHEN\TRAMADOL [Concomitant]
     Active Substance: ACETAMINOPHEN\TRAMADOL
     Indication: Ankylosing spondylitis
     Dosage: 1 TAB, PRN
     Route: 048
     Dates: start: 20200511
  13. ACETAMINOPHEN\TRAMADOL [Concomitant]
     Active Substance: ACETAMINOPHEN\TRAMADOL
     Indication: Crohn^s disease
  14. KETOROLAC [Concomitant]
     Active Substance: KETOROLAC TROMETHAMINE
     Indication: Ankylosing spondylitis
     Dosage: UNK
     Route: 065
     Dates: start: 20200608, end: 20200716
  15. KETOROLAC [Concomitant]
     Active Substance: KETOROLAC TROMETHAMINE
     Dosage: UNK
     Route: 065
     Dates: start: 20200717

REACTIONS (1)
  - Crohn^s disease [Not Recovered/Not Resolved]

NARRATIVE: CASE EVENT DATE: 20200705
